FAERS Safety Report 5990692-8 (Version None)
Quarter: 2008Q4

REPORT INFORMATION
  Report Type: 
  Country: None (occurrence: None)
  Receive Date: 20081211
  Receipt Date: 20081204
  Transmission Date: 20090506
  Serious: Yes (Other)
  Sender: FDA-Public Use
  Company Number: PHHY2008BR30627

PATIENT
  Age: 81 Year
  Sex: Female
  Weight: 55 kg

DRUGS (3)
  1. EXELON [Suspect]
     Indication: DEMENTIA ALZHEIMER'S TYPE
     Dosage: 1.5 MG, BID
     Route: 048
     Dates: start: 20080101
  2. ADALAT [Concomitant]
     Indication: HYPERTENSION
     Dosage: 1 TAB DAILY
     Route: 048
  3. MUVINLAX [Concomitant]
     Indication: CONSTIPATION
     Dosage: UNK
     Route: 048

REACTIONS (7)
  - APHASIA [None]
  - DAYDREAMING [None]
  - DIZZINESS [None]
  - DYSPNOEA [None]
  - FATIGUE [None]
  - INSOMNIA [None]
  - PALPITATIONS [None]
